FAERS Safety Report 5312749-7 (Version None)
Quarter: 2007Q2

REPORT INFORMATION
  Report Type: 
  Country: None (occurrence: None)
  Receive Date: 20070430
  Receipt Date: 20070425
  Transmission Date: 20071010
  Serious: Yes (Life-Threatening)
  Sender: FDA-Public Use
  Company Number: 2007AP02334

PATIENT
  Age: 80 Year
  Sex: Male

DRUGS (2)
  1. IRESSA [Suspect]
     Indication: LUNG NEOPLASM MALIGNANT
     Route: 048
     Dates: start: 20070201
  2. IRESSA [Suspect]
     Route: 048

REACTIONS (1)
  - ACUTE MYOCARDIAL INFARCTION [None]
